FAERS Safety Report 8264274-1 (Version None)
Quarter: 2012Q2

REPORT INFORMATION
  Report Type: 
  Country: None (occurrence: None)
  Receive Date: 20120406
  Receipt Date: 20120330
  Transmission Date: 20120825
  Serious: No
  Sender: FDA-Public Use
  Company Number: US-PFIZER INC-2012084164

PATIENT
  Sex: Female

DRUGS (3)
  1. GABAPENTIN [Suspect]
     Indication: SLEEP DISORDER
     Dosage: 400 MG, UNK
  2. TRAZODONE HCL [Suspect]
     Indication: SLEEP DISORDER
     Dosage: UNK
  3. VENLAFAXINE HCL [Suspect]
     Dosage: UNK

REACTIONS (1)
  - INSOMNIA [None]
